FAERS Safety Report 14715045 (Version 1)
Quarter: 2018Q2

REPORT INFORMATION
  Report Type: Spontaneous
  Country: AU (occurrence: AU)
  Receive Date: 20180404
  Receipt Date: 20180404
  Transmission Date: 20180711
  Serious: Yes (Other)
  Sender: FDA-Public Use
  Company Number: AU-TEVA-2018-AU-876054

PATIENT
  Age: 30 Year
  Sex: Female

DRUGS (2)
  1. APO-FLUVOXAMINE [Concomitant]
     Active Substance: FLUVOXAMINE MALEATE
  2. NUVIGIL [Suspect]
     Active Substance: ARMODAFINIL
     Dosage: DOSAGE UNKNOWN
     Route: 048

REACTIONS (7)
  - Migraine [Unknown]
  - Chest discomfort [Unknown]
  - Mood swings [Unknown]
  - Self-injurious ideation [Unknown]
  - Hypoaesthesia [Unknown]
  - Anxiety [Unknown]
  - Tremor [Unknown]
